FAERS Safety Report 10437169 (Version 2)
Quarter: 2014Q3

REPORT INFORMATION
  Report Type: Spontaneous
  Country: US (occurrence: US)
  Receive Date: 20140908
  Receipt Date: 20140908
  Transmission Date: 20150326
  Serious: No
  Sender: FDA-Public Use
  Company Number: US-BRISTOL-MYERS SQUIBB COMPANY-20342572

PATIENT
  Age: 24 Year
  Sex: Male

DRUGS (1)
  1. ABILIFY [Suspect]
     Active Substance: ARIPIPRAZOLE
     Indication: BIPOLAR DISORDER
     Dosage: TOOK ARIPI; FROM 10 MG TO 15MG TO 20 MG THEN 30 MG, FROM 15 MG-10MG AND THEN 5MG-2MG
     Dates: end: 201309

REACTIONS (6)
  - Agitation [Unknown]
  - Restlessness [Unknown]
  - Insomnia [Unknown]
  - Obsessive-compulsive disorder [Unknown]
  - Tachyphrenia [Unknown]
  - Gambling [Unknown]
